FAERS Safety Report 7783265-8 (Version None)
Quarter: 2011Q3

REPORT INFORMATION
  Report Type: 
  Country: None (occurrence: None)
  Receive Date: 20110928
  Receipt Date: 20110916
  Transmission Date: 20111222
  Serious: Yes (Hospitalization)
  Sender: FDA-Public Use
  Company Number: DK-JNJFOC-20110907925

PATIENT
  Sex: Female

DRUGS (2)
  1. REMICADE [Suspect]
     Indication: PRODUCT USED FOR UNKNOWN INDICATION
     Route: 042
     Dates: start: 20110721, end: 20110721
  2. REMICADE [Suspect]
     Dosage: 300 MG WEEK 0, 2, 6+8
     Route: 042
     Dates: start: 20110307

REACTIONS (6)
  - ANAPHYLACTIC SHOCK [None]
  - TREMOR [None]
  - DISCOMFORT [None]
  - BODY TEMPERATURE INCREASED [None]
  - BLOOD PRESSURE DECREASED [None]
  - INFUSION RELATED REACTION [None]
